FAERS Safety Report 4611836-6 (Version None)
Quarter: 2005Q2

REPORT INFORMATION
  Report Type: 
  Country: None (occurrence: None)
  Receive Date: 20050308
  Receipt Date: 20050111
  Transmission Date: 20051028
  Serious: Yes (Other)
  Sender: FDA-Public Use
  Company Number: 2005UW00533

PATIENT
  Age: 88 Year
  Sex: Female
  Weight: 56.699 kg

DRUGS (9)
  1. CRESTOR [Suspect]
     Indication: HYPERCHOLESTEROLAEMIA
     Dosage: 10 MG PO
     Route: 048
  2. LASIX [Concomitant]
  3. LEXAPRO [Concomitant]
  4. FOSAMAX [Concomitant]
  5. NORVASC [Concomitant]
  6. KLOR-CON [Concomitant]
  7. SYNTHROID [Concomitant]
  8. EXELON [Concomitant]
  9. MEGACE [Concomitant]

REACTIONS (2)
  - FATIGUE [None]
  - FEELING JITTERY [None]
